FAERS Safety Report 17823814 (Version 1)
Quarter: 2020Q2

REPORT INFORMATION
  Report Type: Spontaneous
  Country: US (occurrence: US)
  Receive Date: 20200526
  Receipt Date: 20200526
  Transmission Date: 20200714
  Serious: No
  Sender: FDA-Public Use
  Company Number: US-PFIZER INC-2020204732

PATIENT
  Sex: Male

DRUGS (3)
  1. VASELINE [PARAFFIN] [Concomitant]
     Active Substance: PARAFFIN
     Dosage: UNK
  2. VALTREX [Concomitant]
     Active Substance: VALACYCLOVIR HYDROCHLORIDE
     Dosage: 1 G, 2X/DAY
     Dates: start: 20200402
  3. SILVADENE [Suspect]
     Active Substance: SILVER SULFADIAZINE
     Indication: ANORECTAL DISORDER
     Dosage: UNK

REACTIONS (2)
  - Proctalgia [Unknown]
  - Pelvic floor dysfunction [Unknown]
